FAERS Safety Report 7919251-4 (Version None)
Quarter: 2011Q4

REPORT INFORMATION
  Report Type: 
  Country: None (occurrence: None)
  Receive Date: 20111116
  Receipt Date: 20111116
  Transmission Date: 20120403
  Serious: No
  Sender: FDA-Public Use
  Company Number: None

PATIENT
  Age: 57 Year
  Sex: Female

DRUGS (1)
  1. MEROPENEM [Suspect]
     Dates: start: 20090819, end: 20090829

REACTIONS (3)
  - LIVER DISORDER [None]
  - CHOLESTASIS [None]
  - VANISHING BILE DUCT SYNDROME [None]
